FAERS Safety Report 5175566-7 (Version None)
Quarter: 2006Q4

REPORT INFORMATION
  Report Type: 
  Country: None (occurrence: None)
  Receive Date: 20061212
  Receipt Date: 20061212
  Transmission Date: 20070319
  Serious: Yes (Hospitalization)
  Sender: FDA-Public Use
  Company Number: None

PATIENT
  Age: 51 Year
  Sex: Female
  Weight: 80.8 kg

DRUGS (1)
  1. LOTREL [Suspect]
     Indication: HYPERTENSION
     Dosage: 5 MG/10 MG DAILY PO
     Route: 048
     Dates: start: 20060926, end: 20060930

REACTIONS (2)
  - ANGIONEUROTIC OEDEMA [None]
  - LIP OEDEMA [None]
